FAERS Safety Report 16715066 (Version 1)
Quarter: 2019Q3

REPORT INFORMATION
  Report Type: Spontaneous
  Country: US (occurrence: US)
  Receive Date: 20190819
  Receipt Date: 20190819
  Transmission Date: 20191005
  Serious: No
  Sender: FDA-Public Use
  Company Number: US-PFIZER INC-2019345146

PATIENT
  Sex: Female

DRUGS (1)
  1. PRISTIQ EXTENDED-RELEASE [Suspect]
     Active Substance: DESVENLAFAXINE SUCCINATE
     Dosage: UNK

REACTIONS (10)
  - Withdrawal syndrome [Unknown]
  - Balance disorder [Unknown]
  - Irritability [Unknown]
  - Eye discharge [Unknown]
  - Sinus disorder [Unknown]
  - Nightmare [Unknown]
  - Wrong technique in product usage process [Unknown]
  - Somnolence [Unknown]
  - Insomnia [Unknown]
  - Headache [Unknown]
